FAERS Safety Report 23629123 (Version 6)
Quarter: 2024Q4

REPORT INFORMATION
  Report Type: Spontaneous
  Country: JP (occurrence: JP)
  Receive Date: 20240313
  Receipt Date: 20241120
  Transmission Date: 20250114
  Serious: Yes (Death, Hospitalization, Other)
  Sender: MERCK
  Company Number: JP-MSD-M2024-08602

PATIENT
  Age: 61 Year
  Sex: Male

DRUGS (3)
  1. KEYTRUDA [Suspect]
     Active Substance: PEMBROLIZUMAB
     Indication: Oesophageal carcinoma
     Dosage: 200 MILLIGRAM, Q3W
     Route: 041
     Dates: start: 20230424, end: 20231106
  2. CISPLATIN [Concomitant]
     Active Substance: CISPLATIN
     Indication: Oesophageal carcinoma
     Dosage: UNK
     Route: 065
     Dates: start: 20230424, end: 20231106
  3. FLUOROURACIL [Concomitant]
     Active Substance: FLUOROURACIL
     Indication: Oesophageal carcinoma
     Dosage: UNK
     Route: 065
     Dates: start: 20230424, end: 20231106

REACTIONS (11)
  - Death [Fatal]
  - Malignant neoplasm progression [Unknown]
  - Cytokine storm [Unknown]
  - Spinal cord infarction [Unknown]
  - Immune-mediated lung disease [Unknown]
  - Immune-mediated myocarditis [Recovering/Resolving]
  - Immune-mediated renal disorder [Unknown]
  - Infection [Unknown]
  - Arterial occlusive disease [Unknown]
  - Blood disorder [Unknown]
  - Abdominal pain [Unknown]

NARRATIVE: CASE EVENT DATE: 20231201
